FAERS Safety Report 6322006-8 (Version None)
Quarter: 2009Q3

REPORT INFORMATION
  Report Type: 
  Country: None (occurrence: None)
  Receive Date: 20090824
  Receipt Date: 20090813
  Transmission Date: 20100115
  Serious: Yes (Hospitalization)
  Sender: FDA-Public Use
  Company Number: US-ELI_LILLY_AND_COMPANY-US200906002208

PATIENT
  Sex: Male

DRUGS (16)
  1. FORTEO [Suspect]
     Indication: OSTEOPOROSIS
     Dosage: UNK, UNK
     Dates: start: 20090501, end: 20090101
  2. FORTEO [Suspect]
     Dates: start: 20090101
  3. CYMBALTA [Concomitant]
     Dosage: 60 MG, DAILY (1/D)
  4. OMEPRAZOLE [Concomitant]
     Dosage: 20 MG, 3/D
  5. DURAGESIC-100 [Concomitant]
     Dosage: UNK, OTHER
  6. OXYCODONE [Concomitant]
     Dosage: UNK, AS NEEDED
  7. METOPROLOL [Concomitant]
     Dosage: 50 MG, DAILY (1/D)
  8. ATACAND [Concomitant]
     Dosage: 16 MG, DAILY (1/D)
  9. LUNESTA [Concomitant]
     Dosage: 1 MG, AS NEEDED
  10. METOCLOPRAMIDE [Concomitant]
     Dosage: 5 MG, 4/D
  11. COMPAZINE [Concomitant]
     Dosage: UNK, AS NEEDED
  12. BENZONATATE [Concomitant]
     Dosage: UNK, AS NEEDED
  13. IRON [Concomitant]
     Dosage: 325 MG, 2/D
  14. ACIDOPHILUS [Concomitant]
     Dosage: UNK, DAILY (1/D)
  15. SENNA PLUS [Concomitant]
     Dosage: UNK, 4/D
  16. COUMADIN [Concomitant]

REACTIONS (3)
  - CLOSTRIDIAL INFECTION [None]
  - ILL-DEFINED DISORDER [None]
  - INJECTION SITE HAEMATOMA [None]
